FAERS Safety Report 20948878 (Version 1)
Quarter: 2022Q2

REPORT INFORMATION
  Report Type: Spontaneous
  Country: JP (occurrence: RO)
  Receive Date: 20220612
  Receipt Date: 20220612
  Transmission Date: 20220721
  Serious: Yes (Hospitalization, Other)
  Sender: FDA-Public Use
  Company Number: JP-ALVOGEN-2022-ALVOGEN-120511

PATIENT
  Age: 48 Year
  Sex: Male

DRUGS (3)
  1. DEXAMETHASONE [Suspect]
     Active Substance: DEXAMETHASONE
     Indication: TEMPI syndrome
  2. BORTEZOMIB [Suspect]
     Active Substance: BORTEZOMIB
     Indication: TEMPI syndrome
  3. POMALIDOMIDE [Suspect]
     Active Substance: POMALIDOMIDE
     Indication: TEMPI syndrome

REACTIONS (2)
  - Peritonitis [Recovered/Resolved]
  - Listeriosis [Recovered/Resolved]
